FAERS Safety Report 4771175-X (Version None)
Quarter: 2005Q3

REPORT INFORMATION
  Report Type: 
  Country: None (occurrence: None)
  Receive Date: 20050914
  Receipt Date: 20050830
  Transmission Date: 20060218
  Serious: Yes (Hospitalization)
  Sender: FDA-Public Use
  Company Number: USA0508106813

PATIENT
  Age: 73 Year
  Sex: Female

DRUGS (2)
  1. GEMZAR [Suspect]
     Indication: METASTATIC NEOPLASM
     Dates: start: 20041201
  2. IRINOTECAN HCL [Concomitant]

REACTIONS (3)
  - FACE OEDEMA [None]
  - OEDEMA PERIPHERAL [None]
  - PULMONARY OEDEMA [None]
